FAERS Safety Report 5317009-6 (Version None)
Quarter: 2007Q2

REPORT INFORMATION
  Report Type: 
  Country: None (occurrence: None)
  Receive Date: 20070504
  Receipt Date: 20070425
  Transmission Date: 20071010
  Serious: Yes (Other)
  Sender: FDA-Public Use
  Company Number: CA-PFIZER INC-2007034425

PATIENT
  Age: 40 Year
  Sex: Female

DRUGS (2)
  1. NEURONTIN [Suspect]
     Indication: MIGRAINE
     Route: 048
  2. MORPHINE [Concomitant]
     Route: 050

REACTIONS (4)
  - DEPRESSION [None]
  - FEELING ABNORMAL [None]
  - MIGRAINE [None]
  - PHOBIA [None]
